FAERS Safety Report 18507422 (Version 2)
Quarter: 2020Q4

REPORT INFORMATION
  Report Type: Report from Study
  Country: US (occurrence: US)
  Receive Date: 20201116
  Receipt Date: 20201120
  Transmission Date: 20210114
  Serious: Yes (Hospitalization, Other)
  Sender: FDA-Public Use
  Company Number: US-BRISTOL-MYERS SQUIBB COMPANY-BMS-2020-094915

PATIENT
  Age: 52 Year
  Sex: Female
  Weight: 67.7 kg

DRUGS (9)
  1. NIVOLUMAB [Suspect]
     Active Substance: NIVOLUMAB
     Indication: NON-SMALL CELL LUNG CANCER
     Dosage: 3 MILLIGRAM/KILOGRAM, Q2WK X 4, MAINTAIN: 480 MG
     Route: 042
     Dates: start: 20201102
  2. ATROVENT [Concomitant]
     Active Substance: IPRATROPIUM BROMIDE
     Indication: PRODUCT USED FOR UNKNOWN INDICATION
     Dosage: 0.5 MILLIGRAM, Q6H
     Route: 065
     Dates: start: 20201107
  3. ADVAIR HFA [Concomitant]
     Active Substance: FLUTICASONE PROPIONATE\SALMETEROL XINAFOATE
     Indication: PRODUCT USED FOR UNKNOWN INDICATION
     Dosage: 1 DOSAGE FORM, Q12H, 1 DF - 1 PUFF
     Route: 065
     Dates: start: 20201106
  4. MUCOMYST [Concomitant]
     Active Substance: ACETYLCYSTEINE
     Indication: PRODUCT USED FOR UNKNOWN INDICATION
     Dosage: 2 MILLILITER, Q6H
     Route: 065
     Dates: start: 20201107
  5. REMERON [Concomitant]
     Active Substance: MIRTAZAPINE
     Indication: PRODUCT USED FOR UNKNOWN INDICATION
     Dosage: 7.5 MILLIGRAM, NIGHTLY
     Route: 065
     Dates: start: 20201106
  6. MSIR [Concomitant]
     Active Substance: MORPHINE SULFATE
     Indication: PRODUCT USED FOR UNKNOWN INDICATION
     Dosage: 7.5 MILLIGRAM, Q6H, PRN
     Route: 065
     Dates: start: 20201106
  7. IPILIMUMAB [Suspect]
     Active Substance: IPILIMUMAB
     Indication: NON-SMALL CELL LUNG CANCER
     Dosage: 1 MILLIGRAM/KILOGRAM, Q6WK X 4
     Route: 042
     Dates: start: 20201102
  8. TYLENOL [Concomitant]
     Active Substance: ACETAMINOPHEN
     Indication: PRODUCT USED FOR UNKNOWN INDICATION
     Dosage: 650 MILLIGRAM, Q4H, PRN
     Route: 065
     Dates: start: 20201106
  9. LOVENOX [Concomitant]
     Active Substance: ENOXAPARIN SODIUM
     Indication: PRODUCT USED FOR UNKNOWN INDICATION
     Dosage: 70 MILLIGRAM, Q12H, 1 MG/KG X 67.7 KG
     Route: 065
     Dates: start: 20201107

REACTIONS (2)
  - Pneumonia [Unknown]
  - Superinfection [Unknown]

NARRATIVE: CASE EVENT DATE: 20201106
